FAERS Safety Report 9848622 (Version 1)
Quarter: 2013Q4

REPORT INFORMATION
  Report Type: Spontaneous
  Country: US (occurrence: None)
  Receive Date: 20131224
  Receipt Date: 20131224
  Transmission Date: 20140711
  Serious: Yes (Other)
  Sender: FDA-Public Use
  Company Number: PHEH2013US001238

PATIENT
  Sex: Female

DRUGS (1)
  1. FEMARA [Suspect]
     Indication: BREAST CANCER
     Dosage: UNK
     Dates: start: 20100104, end: 20100220

REACTIONS (4)
  - Breast cancer metastatic [None]
  - Malignant neoplasm progression [None]
  - Nodule [None]
  - Metastases to bone [None]
